FAERS Safety Report 4664814-5 (Version None)
Quarter: 2005Q2

REPORT INFORMATION
  Report Type: 
  Country: None (occurrence: None)
  Receive Date: 20050516
  Receipt Date: 20050504
  Transmission Date: 20051028
  Serious: Yes (Other)
  Sender: FDA-Public Use
  Company Number: 062-20785-04110121

PATIENT
  Age: 66 Year
  Sex: Female

DRUGS (16)
  1. THALIDOMIDE - PHARMION (THALIDOMIDE) (50 MILLIGRAM, CAPSULES) [Suspect]
     Indication: MULTIPLE MYELOMA
     Dosage: SEE IMAGE
     Route: 048
     Dates: start: 20030729, end: 20030101
  2. THALIDOMIDE - PHARMION (THALIDOMIDE) (50 MILLIGRAM, CAPSULES) [Suspect]
     Indication: MULTIPLE MYELOMA
     Dosage: SEE IMAGE
     Route: 048
     Dates: start: 20031101, end: 20031212
  3. CYCLOPHOSPHAMIDE [Suspect]
     Indication: MULTIPLE MYELOMA
     Dosage: SEE IMAGE
     Dates: start: 20030729, end: 20030801
  4. CYCLOPHOSPHAMIDE [Suspect]
     Indication: MULTIPLE MYELOMA
     Dosage: SEE IMAGE
     Dates: start: 20030826, end: 20030829
  5. CYCLOPHOSPHAMIDE [Suspect]
     Indication: MULTIPLE MYELOMA
     Dosage: SEE IMAGE
     Dates: start: 20030924, end: 20040927
  6. ETOPOSIDE [Suspect]
     Indication: MULTIPLE MYELOMA
     Dosage: SEE IMAGE
     Dates: start: 20030729, end: 20030801
  7. ETOPOSIDE [Suspect]
     Indication: MULTIPLE MYELOMA
     Dosage: SEE IMAGE
     Dates: start: 20030826, end: 20030829
  8. ETOPOSIDE [Suspect]
     Indication: MULTIPLE MYELOMA
     Dosage: SEE IMAGE
     Dates: start: 20030924, end: 20030927
  9. DEXAMETHASONE [Suspect]
     Indication: MULTIPLE MYELOMA
     Dosage: SEE IMAGE
     Dates: start: 20030729, end: 20030801
  10. DEXAMETHASONE [Suspect]
     Indication: MULTIPLE MYELOMA
     Dosage: SEE IMAGE
     Dates: start: 20030826, end: 20030829
  11. DEXAMETHASONE [Suspect]
     Indication: MULTIPLE MYELOMA
     Dosage: SEE IMAGE
     Dates: start: 20030924, end: 20030927
  12. PANTOPRAZOLE SODIUM [Concomitant]
  13. DURAGESIC (FENTANYL) [Concomitant]
  14. METOCLOPRAMIDE [Concomitant]
  15. ASPIRIN [Concomitant]
  16. MELAPHALAN (MELPHALAN) [Concomitant]

REACTIONS (3)
  - BUNDLE BRANCH BLOCK RIGHT [None]
  - MITRAL VALVE INCOMPETENCE [None]
  - TRICUSPID VALVE INCOMPETENCE [None]
